FAERS Safety Report 4793858-8 (Version None)
Quarter: 2005Q4

REPORT INFORMATION
  Report Type: 
  Country: None (occurrence: None)
  Receive Date: 20051006
  Receipt Date: 20050921
  Transmission Date: 20060501
  Serious: Yes (Hospitalization)
  Sender: FDA-Public Use
  Company Number: CERZ-10939

PATIENT
  Age: 16 Year
  Sex: Male
  Weight: 61.6 kg

DRUGS (4)
  1. CEREZYME [Suspect]
     Indication: GAUCHER'S DISEASE
     Dosage: 45 U/KG Q2WK IV
     Route: 042
     Dates: start: 20041018
  2. CEREZYME [Suspect]
     Indication: GAUCHER'S DISEASE
     Dosage: 60 U/KG Q2WKS IV
     Route: 042
     Dates: start: 20030912, end: 20041004
  3. NORVASC [Concomitant]
  4. LISINOPRIL [Concomitant]

REACTIONS (4)
  - BIPOLAR I DISORDER [None]
  - DEPRESSION [None]
  - GASTROOESOPHAGEAL REFLUX DISEASE [None]
  - HYPERTENSION [None]
